FAERS Safety Report 4406018-7 (Version None)
Quarter: 2004Q3

REPORT INFORMATION
  Report Type: 
  Country: None (occurrence: None)
  Receive Date: 20040723
  Receipt Date: 20040319
  Transmission Date: 20050211
  Serious: No
  Sender: FDA-Public Use
  Company Number: MCN364902

PATIENT
  Sex: Female

DRUGS (5)
  1. AVANDIA [Suspect]
     Dosage: 8MG PER DAY
     Route: 048
  2. AVANDAMET [Suspect]
     Route: 048
  3. COREG [Suspect]
     Route: 048
  4. METOPROLOL TARTRATE [Suspect]
     Indication: HYPERTENSION
     Route: 048
  5. TOPROL-XL [Suspect]
     Indication: HYPERTENSION
     Route: 048

REACTIONS (1)
  - BLOOD GLUCOSE INCREASED [None]
